FAERS Safety Report 5754740-2 (Version None)
Quarter: 2008Q2

REPORT INFORMATION
  Report Type: 
  Country: None (occurrence: None)
  Receive Date: 20080527
  Receipt Date: 20080501
  Transmission Date: 20081010
  Serious: Yes (Death)
  Sender: FDA-Public Use
  Company Number: 1-16090237

PATIENT
  Age: 73 Year
  Sex: Female
  Weight: 74.8435 kg

DRUGS (4)
  1. FENTANYL [Suspect]
     Indication: METASTATIC PAIN
     Dosage: ONE PATCH EVERY 72 HRS, TRANSDERMA
     Route: 062
     Dates: start: 20071101, end: 20080414
  2. BENADRYL [Concomitant]
  3. LORAZEPAM [Concomitant]
  4. FOSAMAX [Concomitant]

REACTIONS (2)
  - APPLICATION SITE IRRITATION [None]
  - DYSPNOEA [None]
